FAERS Safety Report 24054719 (Version 2)
Quarter: 2024Q3

REPORT INFORMATION
  Report Type: Report from Study
  Country: PT (occurrence: PT)
  Receive Date: 20240705
  Receipt Date: 20240926
  Transmission Date: 20241017
  Serious: Yes (Other)
  Sender: EMD SERONO INC
  Company Number: PT-Merck Healthcare KGaA-2024036169

PATIENT
  Age: 47 Year
  Sex: Female

DRUGS (2)
  1. MAVENCLAD [Suspect]
     Active Substance: CLADRIBINE
     Indication: Multiple sclerosis
     Dosage: YEAR ONE WEEK ONE THERAPY
     Route: 048
     Dates: start: 20230802
  2. MAVENCLAD [Suspect]
     Active Substance: CLADRIBINE
     Dosage: YEAR ONE WEEK TWO THERAPY
     Route: 048

REACTIONS (2)
  - Herpes simplex reactivation [Recovered/Resolved]
  - Ophthalmic herpes simplex [Recovered/Resolved]

NARRATIVE: CASE EVENT DATE: 20231101
